FAERS Safety Report 22651870 (Version 1)
Quarter: 2023Q2

REPORT INFORMATION
  Report Type: Spontaneous
  Country: US (occurrence: US)
  Receive Date: 20230628
  Receipt Date: 20230628
  Transmission Date: 20230722
  Serious: No
  Sender: FDA-Public Use
  Company Number: US-CTI BIOPHARMA-2023US03687

PATIENT

DRUGS (3)
  1. VONJO [Suspect]
     Active Substance: PACRITINIB
     Indication: Monoclonal gammopathy
     Dosage: 200 MG, BID
     Route: 048
     Dates: start: 20230127
  2. HYDROXYUREA [Concomitant]
     Active Substance: HYDROXYUREA
  3. PREDNISONE [Concomitant]
     Active Substance: PREDNISONE

REACTIONS (3)
  - Rosacea [Unknown]
  - Product dose omission issue [Unknown]
  - Off label use [Unknown]
